FAERS Safety Report 6559806-5 (Version None)
Quarter: 2010Q1

REPORT INFORMATION
  Report Type: 
  Country: None (occurrence: None)
  Receive Date: 20100129
  Receipt Date: 20090909
  Transmission Date: 20100710
  Serious: No
  Sender: FDA-Public Use
  Company Number: US-ABBOTT-09P-163-0596837-00

PATIENT
  Sex: Female

DRUGS (2)
  1. HUMIRA [Suspect]
     Indication: PSORIASIS
     Dosage: LOADING DOSE RECEIVED 80MG
     Route: 058
     Dates: start: 20090905, end: 20090905
  2. OMNARIS [Concomitant]
     Indication: DRUG USE FOR UNKNOWN INDICATION
     Route: 045

REACTIONS (5)
  - ERYTHEMA [None]
  - FACIAL PAIN [None]
  - INJECTION SITE HAEMATOMA [None]
  - SKIN IRRITATION [None]
  - SWELLING FACE [None]
